FAERS Safety Report 4824521-2 (Version None)
Quarter: 2005Q4

REPORT INFORMATION
  Report Type: 
  Country: None (occurrence: None)
  Receive Date: 20051108
  Receipt Date: 20051021
  Transmission Date: 20060501
  Serious: Yes (Hospitalization)
  Sender: FDA-Public Use
  Company Number: EWC051046929

PATIENT
  Age: 73 Year
  Sex: Female

DRUGS (6)
  1. FORTEO [Suspect]
     Indication: OSTEOPOROSIS
     Dosage: 20 UG DAY
     Dates: start: 20050301
  2. NORVASC [Concomitant]
  3. UNIKET (ISOSORBIDE MONONITRATE) [Concomitant]
  4. KETOROLAC TROMETHAMINE [Concomitant]
  5. OMEPRAZOLE [Concomitant]
  6. TRANQUILIZER (TRANQUILIZER) [Concomitant]

REACTIONS (3)
  - BLOOD CALCIUM INCREASED [None]
  - CHOLELITHIASIS [None]
  - PANCREATITIS [None]
